FAERS Safety Report 9253007 (Version 1)
Quarter: 2013Q2

REPORT INFORMATION
  Report Type: Spontaneous
  Country: US (occurrence: US)
  Receive Date: 20130424
  Receipt Date: 20130424
  Transmission Date: 20140414
  Serious: Yes (Hospitalization)
  Sender: FDA-Public Use
  Company Number: US-ELI_LILLY_AND_COMPANY-US201304006757

PATIENT
  Age: 58 Year
  Sex: Female
  Weight: 50.79 kg

DRUGS (1)
  1. HUMALOG LISPRO [Suspect]
     Dosage: 17.3 U, QD
     Route: 058

REACTIONS (2)
  - Blood glucose abnormal [Unknown]
  - Blood glucose increased [Unknown]
